FAERS Safety Report 7589022-X (Version None)
Quarter: 2011Q3

REPORT INFORMATION
  Report Type: 
  Country: None (occurrence: None)
  Receive Date: 20110705
  Receipt Date: 20110623
  Transmission Date: 20111222
  Serious: Yes (Other)
  Sender: FDA-Public Use
  Company Number: CA-ELI_LILLY_AND_COMPANY-CA201106007144

PATIENT
  Age: 90 Year
  Sex: Female
  Weight: 48.526 kg

DRUGS (9)
  1. VITAMIN E [Concomitant]
  2. ADVAIR DISKUS 100/50 [Concomitant]
  3. QUININE SULFATE [Concomitant]
  4. PANTOLOC                           /01263202/ [Concomitant]
  5. ASPIRIN [Concomitant]
  6. FORTEO [Suspect]
     Indication: OSTEOPOROSIS
     Dosage: 20 UG, QD
     Route: 058
     Dates: start: 20100615, end: 20110616
  7. VITAMIN D [Concomitant]
  8. MACROBID [Concomitant]
  9. PHENAZOPYRIDINE HCL TAB [Concomitant]

REACTIONS (4)
  - THROMBOSIS [None]
  - BLOOD PRESSURE DECREASED [None]
  - CYSTITIS [None]
  - DECREASED APPETITE [None]
